FAERS Safety Report 9063575 (Version 1)
Quarter: 2013Q1

REPORT INFORMATION
  Report Type: Report from Study
  Country: US (occurrence: US)
  Receive Date: 20130131
  Receipt Date: 20130131
  Transmission Date: 20140127
  Serious: No
  Sender: FDA-Public Use
  Company Number: US-ABBOTT-12P-163-1007952-00

PATIENT
  Age: 55 Year
  Sex: Male

DRUGS (22)
  1. HUMIRA [Suspect]
     Indication: CROHN^S DISEASE
     Dates: start: 20121009, end: 20121009
  2. HUMIRA [Suspect]
     Dates: start: 20121023, end: 20121023
  3. PRILOSEC [Concomitant]
     Indication: GASTROOESOPHAGEAL REFLUX DISEASE
     Dosage: 20MG DAILY
  4. FOLIC ACID [Concomitant]
     Indication: PRODUCT USED FOR UNKNOWN INDICATION
     Dosage: DAILY, MONDAY THROUGH FRIDAY
  5. METHOTREXATE [Concomitant]
     Indication: PRODUCT USED FOR UNKNOWN INDICATION
  6. DOXEPIN [Concomitant]
     Indication: DIARRHOEA
     Dosage: 1-5 TABLETS
  7. DICYCLOMINE [Concomitant]
     Indication: MUSCLE SPASMS
  8. DICYCLOMINE [Concomitant]
     Indication: DIARRHOEA
  9. ATENOLOL [Concomitant]
     Indication: HYPERTENSION
     Dosage: 50MG IN THE AM, 25MG IN THE PM
  10. ATENOLOL [Concomitant]
     Indication: MIGRAINE
  11. TOPAMAX [Concomitant]
     Indication: MIGRAINE
     Dosage: 1 IN THE AM, 4 IN THE PM
  12. ESGIC [Concomitant]
     Indication: PRODUCT USED FOR UNKNOWN INDICATION
  13. FROVA [Concomitant]
     Indication: MIGRAINE
  14. SKELAXIN [Concomitant]
     Indication: TEMPOROMANDIBULAR JOINT SYNDROME
     Dosage: AT BEDTIME
  15. PERCOCET [Concomitant]
     Indication: BACK PAIN
     Dosage: 10/325MG
  16. FENTANYL [Concomitant]
     Indication: BACK PAIN
     Dosage: 12MCG/HOUR
  17. CYMBALTA [Concomitant]
     Indication: DEPRESSION
  18. AMBIEN [Concomitant]
     Indication: INSOMNIA
     Dosage: AT BEDTIME
  19. COLACE [Concomitant]
     Indication: CONSTIPATION
  20. CALCIUM [Concomitant]
     Indication: PRODUCT USED FOR UNKNOWN INDICATION
     Dosage: DAILY
  21. VIT. E [Concomitant]
     Indication: PRODUCT USED FOR UNKNOWN INDICATION
     Dosage: DAILY
  22. FISH OIL [Concomitant]
     Indication: PRODUCT USED FOR UNKNOWN INDICATION
     Dosage: DAILY

REACTIONS (1)
  - Inappropriate schedule of drug administration [Unknown]
